FAERS Safety Report 7927278-1 (Version None)
Quarter: 2011Q4

REPORT INFORMATION
  Report Type: 
  Country: None (occurrence: None)
  Receive Date: 20111117
  Receipt Date: 20111117
  Transmission Date: 20120403
  Serious: Yes (Hospitalization)
  Sender: FDA-Public Use
  Company Number: None

PATIENT
  Age: 49 Year
  Sex: Male
  Weight: 84.2 kg

DRUGS (2)
  1. SULFAMETHOXAZOLE AND TRIMETHOPRIM [Suspect]
     Indication: SINUSITIS
     Dosage: 2 BID PO
     Route: 048
     Dates: start: 20110427, end: 20110430
  2. SULFAMETHOXAZOLE AND TRIMETHOPRIM [Suspect]
     Indication: CELLULITIS
     Dosage: 2 BID PO
     Route: 048
     Dates: start: 20110427, end: 20110430

REACTIONS (5)
  - BLOOD UREA INCREASED [None]
  - VOMITING [None]
  - DIARRHOEA [None]
  - NAUSEA [None]
  - BLOOD CREATININE INCREASED [None]
